FAERS Safety Report 5276282-3 (Version None)
Quarter: 2007Q1

REPORT INFORMATION
  Report Type: 
  Country: None (occurrence: None)
  Receive Date: 20070326
  Receipt Date: 20070316
  Transmission Date: 20070707
  Serious: Yes (Hospitalization)
  Sender: FDA-Public Use
  Company Number: FR-ABBOTT-07P-056-0362296-00

PATIENT
  Age: 62 Year
  Sex: Female

DRUGS (7)
  1. RITONAVIR SOFT GELATIN CAPSULES [Suspect]
     Indication: DRUG USE FOR UNKNOWN INDICATION
     Route: 048
     Dates: start: 20070120
  2. APTIVUS [Suspect]
     Indication: DRUG USE FOR UNKNOWN INDICATION
     Route: 048
     Dates: start: 20070120
  3. NEVIRAPINE [Suspect]
     Indication: DRUG USE FOR UNKNOWN INDICATION
     Route: 048
     Dates: start: 20070120, end: 20070130
  4. VALPROATE SODIUM [Concomitant]
     Indication: DRUG USE FOR UNKNOWN INDICATION
  5. BROMAZEPAM [Concomitant]
     Indication: DRUG USE FOR UNKNOWN INDICATION
  6. ZOPICLONE [Concomitant]
     Indication: DRUG USE FOR UNKNOWN INDICATION
  7. TRUVADA [Concomitant]
     Indication: DRUG USE FOR UNKNOWN INDICATION
     Dates: start: 20070120

REACTIONS (3)
  - ORAL DISCOMFORT [None]
  - RASH MACULO-PAPULAR [None]
  - SKIN BURNING SENSATION [None]
